FAERS Safety Report 18232817 (Version 1)
Quarter: 2020Q3

REPORT INFORMATION
  Report Type: Spontaneous
  Country: BY (occurrence: BY)
  Receive Date: 20200904
  Receipt Date: 20200904
  Transmission Date: 20201103
  Serious: Yes (Other)
  Sender: FDA-Public Use
  Company Number: BY-BAYER-2020-180027

PATIENT
  Age: 29 Year
  Sex: Female

DRUGS (1)
  1. QLAIRA [Suspect]
     Active Substance: DIENOGEST\ESTRADIOL VALERATE
     Indication: CONTRACEPTION
     Dosage: UNK
     Route: 048
     Dates: start: 20200628

REACTIONS (4)
  - Menstrual disorder [None]
  - Ovarian neoplasm [None]
  - Malaise [None]
  - Abdominal pain lower [None]

NARRATIVE: CASE EVENT DATE: 20200816
